FAERS Safety Report 25370024 (Version 4)
Quarter: 2025Q2

REPORT INFORMATION
  Report Type: Spontaneous
  Country: JP (occurrence: JP)
  Receive Date: 20250528
  Receipt Date: 20250620
  Transmission Date: 20250717
  Serious: Yes (Hospitalization)
  Sender: PFIZER
  Company Number: JP-PFIZER INC-PV202500063851

PATIENT
  Age: 54 Year
  Sex: Female
  Weight: 49.4 kg

DRUGS (4)
  1. LITFULO [Suspect]
     Active Substance: RITLECITINIB TOSYLATE
     Indication: Alopecia areata
     Dosage: 50 MG, DAILY
     Route: 048
     Dates: start: 20250201, end: 20250418
  2. STADERM [IBUPROFEN PICONOL] [Concomitant]
  3. GLYCOSAMINOGLYCANS [Concomitant]
     Active Substance: GLYCOSAMINOGLYCANS
  4. MYSER [DIFLUPREDNATE] [Concomitant]

REACTIONS (1)
  - Pancreatic carcinoma [Unknown]

NARRATIVE: CASE EVENT DATE: 20250418
